FAERS Safety Report 7150782-3 (Version None)
Quarter: 2010Q4

REPORT INFORMATION
  Report Type: 
  Country: None (occurrence: None)
  Receive Date: 20101210
  Receipt Date: 20101202
  Transmission Date: 20110411
  Serious: Yes (Death)
  Sender: FDA-Public Use
  Company Number: US-JNJFOC-20101007536

PATIENT
  Sex: Male
  Weight: 107.5 kg

DRUGS (5)
  1. STELARA [Suspect]
     Indication: PSORIASIS
     Route: 058
  2. STELARA [Suspect]
     Route: 058
  3. STELARA [Suspect]
     Dosage: 2 DOSES TOTAL
     Route: 058
  4. HUMIRA [Suspect]
     Indication: PSORIASIS
  5. HUMIRA [Suspect]

REACTIONS (4)
  - ARTERIOSCLEROSIS [None]
  - HYPERTENSIVE HEART DISEASE [None]
  - OROPHARYNGEAL PAIN [None]
  - PRURITUS [None]
